FAERS Safety Report 22127964 (Version 2)
Quarter: 2023Q2

REPORT INFORMATION
  Report Type: Report from Study
  Country: US (occurrence: US)
  Receive Date: 20230323
  Receipt Date: 20230411
  Transmission Date: 20230722
  Serious: Yes (Other)
  Sender: FDA-Public Use
  Company Number: US-ABBVIE-4698520

PATIENT
  Age: 62 Year
  Sex: Female

DRUGS (4)
  1. SKYRIZI [Suspect]
     Active Substance: RISANKIZUMAB-RZAA
     Indication: Psoriasis
     Dosage: FIRST DOSE
     Route: 058
     Dates: start: 20230210, end: 20230210
  2. SKYRIZI [Suspect]
     Active Substance: RISANKIZUMAB-RZAA
     Indication: Psoriasis
     Dosage: SECOND DOSE, EVENT ONSET DATE 2023 FOR LUPUS.
     Route: 058
     Dates: start: 20230310
  3. LOSARTAN AND HYDROCHLOROTHIAZIDE [Suspect]
     Active Substance: HYDROCHLOROTHIAZIDE\LOSARTAN POTASSIUM
     Indication: Product used for unknown indication
     Dosage: 100-25 MILLIGRAM
     Route: 065
     Dates: start: 20230228
  4. RAMIPRIL [Concomitant]
     Active Substance: RAMIPRIL
     Indication: Product used for unknown indication

REACTIONS (7)
  - Systemic lupus erythematosus [Unknown]
  - Rash macular [Not Recovered/Not Resolved]
  - Skin swelling [Not Recovered/Not Resolved]
  - Feeling hot [Not Recovered/Not Resolved]
  - Paraesthesia [Not Recovered/Not Resolved]
  - Skin tightness [Not Recovered/Not Resolved]
  - Unevaluable event [Unknown]

NARRATIVE: CASE EVENT DATE: 20230315
